FAERS Safety Report 14315149 (Version 1)
Quarter: 2017Q4

REPORT INFORMATION
  Report Type: Spontaneous
  Country: GB (occurrence: GB)
  Receive Date: 20171221
  Receipt Date: 20171221
  Transmission Date: 20180321
  Serious: Yes (Hospitalization, Other)
  Sender: FDA-Public Use
  Company Number: GB-TEVA-2017-GB-833854

PATIENT
  Age: 66 Year
  Sex: Female
  Weight: 77 kg

DRUGS (20)
  1. BETNOVATE [Concomitant]
     Active Substance: BETAMETHASONE
     Dosage: 2 DOSAGE FORMS DAILY;
     Dates: start: 20170407, end: 20171018
  2. CANDESARTAN. [Concomitant]
     Active Substance: CANDESARTAN
     Dosage: 1 DOSAGE FORMS DAILY;
     Dates: start: 20170407, end: 20171018
  3. PROPRANOLOL [Concomitant]
     Active Substance: PROPRANOLOL HYDROCHLORIDE
     Dosage: 3 DOSAGE FORMS DAILY;
     Dates: start: 20170904, end: 20171018
  4. VENTOLIN [Concomitant]
     Active Substance: ALBUTEROL SULFATE
     Dosage: 2 DOSAGE FORMS DAILY;
     Route: 055
     Dates: start: 20170407, end: 20171018
  5. AMIODARONE [Suspect]
     Active Substance: AMIODARONE
     Dates: start: 20171101
  6. DIGOXIN. [Concomitant]
     Active Substance: DIGOXIN
     Dosage: 1 DOSAGE FORMS DAILY;
     Dates: start: 20170904, end: 20171018
  7. SERETIDE [Concomitant]
     Active Substance: FLUTICASONE PROPIONATE\SALMETEROL XINAFOATE
     Dosage: 4 DOSAGE FORMS DAILY;
     Route: 055
     Dates: start: 20170407, end: 20171018
  8. CARBIMAZOLE [Concomitant]
     Active Substance: CARBIMAZOLE
     Dosage: TAKE 3 A DAY FOR 4 WEEKS AND THEN RETURN TO 2 A...
     Dates: start: 20170904, end: 20171018
  9. FUROSEMIDE. [Concomitant]
     Active Substance: FUROSEMIDE
     Dosage: 1 DOSAGE FORMS DAILY; AT LUNCH TIME.
     Dates: start: 20170407, end: 20171018
  10. BISOPROLOL [Concomitant]
     Active Substance: BISOPROLOL
     Dosage: 1 DOSAGE FORMS DAILY;
     Dates: start: 20170407, end: 20171018
  11. EMULSIDERM [Concomitant]
     Dosage: APPLY AS DIRECTED
     Dates: start: 20170407, end: 20171010
  12. ACLIDINIUM [Concomitant]
     Active Substance: ACLIDINIUM BROMIDE
     Dosage: 2 DOSAGE FORMS DAILY;
     Route: 055
     Dates: start: 20170407, end: 20171018
  13. CO-AMOXICLAV [Concomitant]
     Active Substance: AMOXICILLIN\CLAVULANIC ACID
     Dosage: 3 DOSAGE FORMS DAILY; RECSUE PACK FOR BRONCHIECT...
     Dates: start: 20170407, end: 20171018
  14. PREDNISOLONE. [Concomitant]
     Active Substance: PREDNISOLONE
     Dosage: 40 MILLIGRAM DAILY;
     Dates: start: 20170407
  15. SPIRONOLACTONE. [Concomitant]
     Active Substance: SPIRONOLACTONE
     Dosage: .5 DOSAGE FORMS DAILY; EVERY MORNING AS DIRECTED.
     Dates: start: 20170407, end: 20171018
  16. PHYLLOCONTIN [Concomitant]
     Active Substance: AMINOPHYLLINE
     Dosage: 2 DOSAGE FORMS DAILY;
     Dates: start: 20170407, end: 20171018
  17. EDOXABAN [Concomitant]
     Active Substance: EDOXABAN TOSYLATE
     Dosage: 1 DOSAGE FORMS DAILY;
     Dates: start: 20170724, end: 20171018
  18. TRAVOPROST. [Concomitant]
     Active Substance: TRAVOPROST
     Dosage: 1 GTT DAILY;
     Dates: start: 20170407, end: 20171018
  19. STERINEB SALINE [Concomitant]
     Dosage: 3 DOSAGE FORMS DAILY;
     Dates: start: 20170407, end: 20171018
  20. LANSOPRAZOLE. [Concomitant]
     Active Substance: LANSOPRAZOLE
     Dosage: 1 DOSAGE FORMS DAILY;
     Dates: start: 20170407, end: 20171018

REACTIONS (2)
  - Eye disorder [Not Recovered/Not Resolved]
  - Phlebitis [Unknown]

NARRATIVE: CASE EVENT DATE: 20171101
